FAERS Safety Report 10261364 (Version 2)
Quarter: 2014Q4

REPORT INFORMATION
  Report Type: Spontaneous
  Country: US (occurrence: US)
  Receive Date: 20140626
  Receipt Date: 20141119
  Transmission Date: 20150528
  Serious: Yes (Death, Other)
  Sender: FDA-Public Use
  Company Number: US-BRISTOL-MYERS SQUIBB COMPANY-21056759

PATIENT
  Age: 50 Year
  Sex: Male
  Weight: 102.49 kg

DRUGS (10)
  1. METFORMIN HCL [Concomitant]
     Active Substance: METFORMIN HYDROCHLORIDE
  2. LANTUS [Concomitant]
     Active Substance: INSULIN GLARGINE
  3. BYETTA [Suspect]
     Active Substance: EXENATIDE
     Dates: start: 20060313, end: 20131021
  4. ASPIRIN. [Concomitant]
     Active Substance: ASPIRIN
  5. GLIMEPIRIDE. [Concomitant]
     Active Substance: GLIMEPIRIDE
  6. MULTIVITAMIN [Concomitant]
     Active Substance: VITAMINS
  7. CLARITIN [Concomitant]
     Active Substance: LORATADINE
  8. IBUPROFEN. [Concomitant]
     Active Substance: IBUPROFEN
  9. PREVACID [Concomitant]
     Active Substance: LANSOPRAZOLE
  10. CENTRUM SILVER [Concomitant]
     Active Substance: VITAMINS

REACTIONS (2)
  - Prostate cancer [Unknown]
  - Pancreatic carcinoma metastatic [Fatal]

NARRATIVE: CASE EVENT DATE: 20140102
